FAERS Safety Report 7029565-0 (Version None)
Quarter: 2010Q4

REPORT INFORMATION
  Report Type: 
  Country: None (occurrence: None)
  Receive Date: 20101005
  Receipt Date: 20100928
  Transmission Date: 20110411
  Serious: Yes (Other)
  Sender: FDA-Public Use
  Company Number: US-AMGEN-QUU423879

PATIENT
  Sex: Female
  Weight: 48.6 kg

DRUGS (4)
  1. NPLATE [Suspect]
     Indication: IDIOPATHIC THROMBOCYTOPENIC PURPURA
     Dates: start: 20100401
  2. CYCLOSPORINE [Concomitant]
  3. LORAZEPAM [Concomitant]
  4. CORTICOSTEROIDS [Concomitant]

REACTIONS (10)
  - ASTHENIA [None]
  - BACK PAIN [None]
  - FATIGUE [None]
  - HEARING IMPAIRED [None]
  - IMPAIRED HEALING [None]
  - INSOMNIA [None]
  - PAIN [None]
  - THERAPEUTIC RESPONSE DECREASED [None]
  - WEIGHT DECREASED [None]
  - WOUND INFECTION [None]
